FAERS Safety Report 25914026 (Version 1)
Quarter: 2025Q4

REPORT INFORMATION
  Report Type: Spontaneous
  Country: GB (occurrence: GB)
  Receive Date: 20251013
  Receipt Date: 20251013
  Transmission Date: 20260118
  Serious: Yes (Other)
  Sender: TEVA
  Company Number: GB-MHRA-TPP19638872C9988217YC1759833772529

PATIENT
  Age: 14 Year
  Sex: Female
  Weight: 52 kg

DRUGS (5)
  1. PROPRANOLOL [Suspect]
     Active Substance: PROPRANOLOL HYDROCHLORIDE
     Indication: Ill-defined disorder
     Route: 065
     Dates: start: 20251006
  2. AMITRIPTYLINE HYDROCHLORIDE [Concomitant]
     Active Substance: AMITRIPTYLINE HYDROCHLORIDE
     Indication: Ill-defined disorder
     Dosage: TAKE ONE AT NIGHT, 1 DOSAGE FORMS DAILY
     Dates: start: 20250930
  3. PROPRANOLOL [Concomitant]
     Active Substance: PROPRANOLOL HYDROCHLORIDE
     Indication: Ill-defined disorder
     Dosage: TAKE ONE TABLET TWICE A DAY, 2 DOSAGE FORMS DAILY, DURATION: 29 DAYS
     Dates: start: 20250819, end: 20250916
  4. ETHINYL ESTRADIOL\LEVONORGESTREL [Concomitant]
     Active Substance: ETHINYL ESTRADIOL\LEVONORGESTREL
     Indication: Ill-defined disorder
     Dosage: TAKE ONE AS DIRECTED
     Dates: start: 20250819
  5. OXYBUTYNIN [Concomitant]
     Active Substance: OXYBUTYNIN
     Indication: Ill-defined disorder
     Dosage: TAKE ONE DAILY
     Dates: start: 20250219

REACTIONS (1)
  - Chest discomfort [Recovered/Resolved]

NARRATIVE: CASE EVENT DATE: 20251006
